FAERS Safety Report 8458892-5 (Version None)
Quarter: 2012Q2

REPORT INFORMATION
  Report Type: 
  Country: None (occurrence: None)
  Receive Date: 20120622
  Receipt Date: 20120613
  Transmission Date: 20120825
  Serious: Yes (Hospitalization, Other)
  Sender: FDA-Public Use
  Company Number: US-BAYER-2012-022971

PATIENT
  Age: 37 Year
  Sex: Female
  Weight: 70.295 kg

DRUGS (3)
  1. ANTIBIOTICS [Concomitant]
  2. YAZ [Suspect]
     Indication: PREMENSTRUAL SYNDROME
     Dosage: UNK
     Dates: start: 20091109, end: 20100204
  3. YAZ [Suspect]
     Indication: CONTRACEPTION

REACTIONS (6)
  - TRANSVERSE SINUS THROMBOSIS [None]
  - THROMBOSIS [None]
  - POST-TRAUMATIC STRESS DISORDER [None]
  - PULMONARY EMBOLISM [None]
  - HEADACHE [None]
  - MENTAL DISORDER [None]
